FAERS Safety Report 6416805-1 (Version None)
Quarter: 2009Q4

REPORT INFORMATION
  Report Type: 
  Country: None (occurrence: None)
  Receive Date: 20091022
  Receipt Date: 20091012
  Transmission Date: 20100525
  Serious: Yes (Death, Hospitalization)
  Sender: FDA-Public Use
  Company Number: 2009AC000208

PATIENT
  Sex: Male

DRUGS (22)
  1. DIGOXIN [Suspect]
     Dosage: PO
     Route: 048
  2. COLCHICINE [Concomitant]
  3. FLONASE [Concomitant]
  4. CHLORPHENIRAMINE MALEATE AND PSEUDOEPHEDRINE HCL [Concomitant]
  5. QUININE SULFATE [Concomitant]
  6. LIPITOR [Concomitant]
  7. PRILOSEC [Concomitant]
  8. ANDROGEL [Concomitant]
  9. ALLOPURINOL [Concomitant]
  10. MORPHINE [Concomitant]
  11. VOLTAREN [Concomitant]
  12. SPIRONOLACTONE [Concomitant]
  13. LASIX [Concomitant]
  14. COREG [Concomitant]
  15. LISINOPRIL [Concomitant]
  16. ASPIRIN [Concomitant]
  17. PLAVIX [Concomitant]
  18. KLOR-CON [Concomitant]
  19. LORAZEPAM [Concomitant]
  20. ZANTAC [Concomitant]
  21. LEVOTHROID [Concomitant]
  22. GLYBURIDE [Concomitant]

REACTIONS (20)
  - ARTERIOSCLEROSIS CORONARY ARTERY [None]
  - BACK PAIN [None]
  - CARDIAC FAILURE CONGESTIVE [None]
  - CARDIO-RESPIRATORY ARREST [None]
  - COLD SWEAT [None]
  - DIABETES MELLITUS [None]
  - ECONOMIC PROBLEM [None]
  - HYPERLIPIDAEMIA [None]
  - HYPOTHYROIDISM [None]
  - ISCHAEMIC CARDIOMYOPATHY [None]
  - MULTIPLE INJURIES [None]
  - MUSCULAR WEAKNESS [None]
  - MYOCARDIAL ISCHAEMIA [None]
  - PAIN [None]
  - PAIN IN EXTREMITY [None]
  - PLEURAL EFFUSION [None]
  - PNEUMONIA [None]
  - PULMONARY HYPERTENSION [None]
  - RENAL FAILURE [None]
  - WEIGHT INCREASED [None]
